FAERS Safety Report 16070175 (Version 3)
Quarter: 2019Q1

REPORT INFORMATION
  Report Type: Report from Study
  Country: IT (occurrence: IT)
  Receive Date: 20190314
  Receipt Date: 20190329
  Transmission Date: 20190418
  Serious: Yes (Other)
  Sender: FDA-Public Use
  Company Number: IT-ACCORD-112594

PATIENT
  Age: 73 Year
  Sex: Male

DRUGS (5)
  1. FENTANYL. [Concomitant]
     Active Substance: FENTANYL
  2. PACLITAXEL/PACLITAXEL LIPOSOME [Suspect]
     Active Substance: PACLITAXEL
     Indication: BLADDER CANCER
     Route: 042
     Dates: start: 20180918, end: 20181003
  3. CLEXANE [Concomitant]
     Active Substance: ENOXAPARIN SODIUM
  4. MOVICOL [Concomitant]
     Active Substance: POLYETHYLENE GLYCOL 3350\POTASSIUM CHLORIDE\SODIUM BICARBONATE\SODIUM CHLORIDE
  5. SOLDESAM [Concomitant]
     Active Substance: DEXAMETHASONE

REACTIONS (7)
  - Asthenia [Unknown]
  - Blood iron decreased [Unknown]
  - Pallor [Unknown]
  - Thrombocytopenia [Recovering/Resolving]
  - Mobility decreased [None]
  - Anaemia [Unknown]
  - Off label use [Unknown]

NARRATIVE: CASE EVENT DATE: 20181002
